FAERS Safety Report 25604152 (Version 6)
Quarter: 2025Q4

REPORT INFORMATION
  Report Type: Report from Study
  Country: US (occurrence: US)
  Receive Date: 20250725
  Receipt Date: 20251013
  Transmission Date: 20260118
  Serious: Yes (Hospitalization)
  Sender: TAKEDA
  Company Number: US-TAKEDA-2025TUS066196

PATIENT
  Age: 63 Year
  Sex: Female

DRUGS (8)
  1. PONATINIB [Suspect]
     Active Substance: PONATINIB
     Indication: Chronic myeloid leukaemia
     Dosage: 45 MILLIGRAM, QD
  2. PONATINIB [Suspect]
     Active Substance: PONATINIB
     Dosage: 30 MILLIGRAM
  3. PONATINIB [Suspect]
     Active Substance: PONATINIB
     Dosage: 30 MILLIGRAM, QD
  4. ALLOPURINOL [Concomitant]
     Active Substance: ALLOPURINOL
     Dosage: UNK
  5. ELIQUIS [Concomitant]
     Active Substance: APIXABAN
     Dosage: UNK
  6. SERTRALINE HYDROCHLORIDE [Concomitant]
     Active Substance: SERTRALINE HYDROCHLORIDE
     Dosage: UNK
  7. ACYCLOVIR [Concomitant]
     Active Substance: ACYCLOVIR
     Dosage: UNK
  8. NIFEDIPINE [Concomitant]
     Active Substance: NIFEDIPINE
     Dosage: UNK

REACTIONS (6)
  - Toxicity to various agents [Unknown]
  - Localised infection [Unknown]
  - Skin discolouration [Unknown]
  - Skin exfoliation [Unknown]
  - Alopecia [Unknown]
  - Diarrhoea [Unknown]
